FAERS Safety Report 24176943 (Version 3)
Quarter: 2024Q4

REPORT INFORMATION
  Report Type: Spontaneous
  Country: DE (occurrence: DE)
  Receive Date: 20240806
  Receipt Date: 20241001
  Transmission Date: 20250115
  Serious: No
  Sender: SANOFI AVENTIS
  Company Number: DE-SANOFI-02158352

PATIENT
  Age: 15 Year
  Sex: Male

DRUGS (4)
  1. DUPIXENT [Suspect]
     Active Substance: DUPILUMAB
     Indication: Linear IgA disease
     Dosage: 600 MG 1X
     Dates: start: 20240718, end: 20240718
  2. DAPSONE [Concomitant]
     Active Substance: DAPSONE
     Indication: Linear IgA disease
     Dosage: 75 MG
     Route: 048
     Dates: start: 202303, end: 20240717
  3. DAPSONE [Concomitant]
     Active Substance: DAPSONE
     Dosage: UNK
     Dates: start: 20240721
  4. FOLIC ACID [Concomitant]
     Active Substance: FOLIC ACID
     Dosage: 1 MG, QW
     Route: 048
     Dates: start: 202406

REACTIONS (1)
  - Off label use [Unknown]

NARRATIVE: CASE EVENT DATE: 20240718
